FAERS Safety Report 13989445 (Version 1)
Quarter: 2017Q3

REPORT INFORMATION
  Report Type: Other
  Country: CA (occurrence: CA)
  Receive Date: 20170920
  Receipt Date: 20170920
  Transmission Date: 20171128
  Serious: Yes (Hospitalization)
  Sender: FDA-Public Use
  Company Number: CA-APOTEX-2017AP018183

PATIENT
  Age: 61 Year
  Sex: Female

DRUGS (1)
  1. APO-CARBAMAZEPINE CR [Suspect]
     Active Substance: CARBAMAZEPINE
     Indication: FACIAL SPASM
     Dosage: UNK
     Route: 048

REACTIONS (6)
  - Glomerular filtration rate decreased [Unknown]
  - Malaise [Unknown]
  - Urticaria [Unknown]
  - Body temperature abnormal [Unknown]
  - Headache [Unknown]
  - Hypotension [Unknown]
